FAERS Safety Report 9168826 (Version 1)
Quarter: 2013Q1

REPORT INFORMATION
  Report Type: Spontaneous
  Country: TR (occurrence: None)
  Receive Date: 20130308
  Receipt Date: 20130308
  Transmission Date: 20140127
  Serious: Yes (Hospitalization)
  Sender: FDA-Public Use
  Company Number: NL01PV13.32191

PATIENT
  Age: 60 Year
  Sex: Male

DRUGS (4)
  1. TAMSULOSIN [Suspect]
  2. GEMIFLOXACIN MESYLATE [Suspect]
     Indication: BRONCHITIS
  3. CARVEDILOL (CARVEDILOL) [Suspect]
  4. ACE INHIBITORS [Suspect]

REACTIONS (1)
  - Anaphylactic reaction [None]
